FAERS Safety Report 10599750 (Version 1)
Quarter: 2014Q4

REPORT INFORMATION
  Report Type: Spontaneous
  Country: US (occurrence: US)
  Receive Date: 20141121
  Receipt Date: 20141121
  Transmission Date: 20150529
  Serious: Yes (Hospitalization, Other)
  Sender: FDA-Public Use
  Company Number: US-ELI_LILLY_AND_COMPANY-US201411004872

PATIENT
  Age: 50 Year
  Sex: Female

DRUGS (5)
  1. LANTUS [Concomitant]
     Active Substance: INSULIN GLARGINE
  2. HYDROCODONE [Concomitant]
     Active Substance: HYDROCODONE
  3. LEVEMIR [Concomitant]
     Active Substance: INSULIN DETEMIR
  4. HUMALOG [Suspect]
     Active Substance: INSULIN LISPRO
     Indication: TYPE 1 DIABETES MELLITUS
     Dosage: 9.5 U, QD
     Route: 065
     Dates: start: 201309
  5. GABAPENTIN. [Concomitant]
     Active Substance: GABAPENTIN
     Dosage: 600 MG, QID

REACTIONS (13)
  - Neuropathy peripheral [Not Recovered/Not Resolved]
  - Hot flush [Unknown]
  - Arthritis [Not Recovered/Not Resolved]
  - Cholelithiasis [Unknown]
  - Blood glucose fluctuation [Unknown]
  - Spinal cord compression [Not Recovered/Not Resolved]
  - Plantar fascial fibromatosis [Not Recovered/Not Resolved]
  - Dupuytren^s contracture [Not Recovered/Not Resolved]
  - Plantar fasciitis [Not Recovered/Not Resolved]
  - Aphasia [Unknown]
  - Weight decreased [Unknown]
  - Autoimmune thyroiditis [Not Recovered/Not Resolved]
  - Blood glucose decreased [Unknown]

NARRATIVE: CASE EVENT DATE: 201311
